FAERS Safety Report 11758215 (Version 1)
Quarter: 2015Q4

REPORT INFORMATION
  Report Type: Spontaneous
  Country: US (occurrence: US)
  Receive Date: 20151120
  Receipt Date: 20151120
  Transmission Date: 20160304
  Serious: Yes (Other)
  Sender: FDA-Public Use
  Company Number: US-JNJFOC-20151114200

PATIENT
  Age: 57 Year
  Sex: Male
  Weight: 105.24 kg

DRUGS (2)
  1. PINDOLOL. [Concomitant]
     Active Substance: PINDOLOL
     Indication: HYPERTENSION
     Route: 065
     Dates: start: 2005
  2. STELARA [Suspect]
     Active Substance: USTEKINUMAB
     Indication: PSORIATIC ARTHROPATHY
     Dosage: STRENGTH- 90 MG
     Route: 058
     Dates: start: 2013

REACTIONS (4)
  - Mass [Not Recovered/Not Resolved]
  - Weight decreased [Recovered/Resolved]
  - Drug dose omission [Not Recovered/Not Resolved]
  - Decreased appetite [Not Recovered/Not Resolved]

NARRATIVE: CASE EVENT DATE: 2015
